FAERS Safety Report 4397853-2 (Version None)
Quarter: 2004Q2

REPORT INFORMATION
  Report Type: 
  Country: None (occurrence: None)
  Receive Date: 20040621
  Receipt Date: 20040407
  Transmission Date: 20050107
  Serious: Yes (Death)
  Sender: FDA-Public Use
  Company Number: USA-2004-0014420

PATIENT
  Age: 56 Year
  Sex: Male
  Weight: 45.4 kg

DRUGS (4)
  1. OXYCONTIN [Suspect]
     Dosage: UNK UNK, UNK; UNKNOWN
     Route: 065
  2. PROPOXYPHENE (DEXTROPROPOXYPHENE) [Suspect]
     Dosage: UNK UNK, UNK; UNKNOWN
     Route: 065
  3. NAPROXEN [Suspect]
     Dosage: UNK UNK, UNK; UNKNOWN
     Route: 065
  4. PHENETHYLAMINE [Suspect]
     Dosage: UNK UNK, UNK; UNKNOWN
     Route: 065

REACTIONS (2)
  - ACCIDENTAL OVERDOSE [None]
  - MULTIPLE DRUG OVERDOSE [None]
